FAERS Safety Report 10236684 (Version 1)
Quarter: 2014Q1

REPORT INFORMATION
  Report Type: Spontaneous
  Country: US (occurrence: None)
  Receive Date: 20140306
  Receipt Date: 20140306
  Transmission Date: 20141002
  Serious: Yes (Hospitalization)
  Sender: FDA-Public Use
  Company Number: 163-21880-13082102

PATIENT
  Age: 75 Year
  Sex: Male
  Weight: 153.2 kg

DRUGS (16)
  1. AUGMENTIN [Concomitant]
  2. CARTIA (ACETYLSALICYLIC ACID) (CAPSULES) [Concomitant]
  3. COMBIVENT (COMBIVENT) (AEROSOL FOR INHALATION) [Concomitant]
  4. CYCLOPHOSPHAMIDE (CYCLOPHOSPHAMIDE) (TABLETS) [Concomitant]
  5. DEXAMETHASONE (DEXAMETHASONE) (4 MILLIGRAM, TABLETS) [Concomitant]
  6. HYDRALAZINE HCL (HYDRALAZINE HYDROCHLORIDE) (TABLETS) [Concomitant]
  7. HYDROCHLOROTHIAZIDE (HYDROCHLOROTHIAZIDE) (TABLETS) [Concomitant]
  8. LIPITOR (ATORVASTATIN) (TABLETS) [Concomitant]
  9. LISINOPRIL (LISINOPRIL) (TABLETS) [Concomitant]
  10. METOPROLOL SUCCINATE (METOPROLOL SUCCINATE) (TABLETS) [Concomitant]
  11. ONDANSETRON HCL (ONDANSETRON HYDROCHLORIDE) (TABLETS) [Concomitant]
  12. PREDNISONE (PREDNISONE) (20 MILLIGRAM, TABLETS) [Concomitant]
  13. VALACYCLOVIR (VALACICLOVIR HYDROCHLORIDE) (TABLETS) [Concomitant]
  14. XARELTO (RIVAROXABAN) (TABLETS) [Concomitant]
  15. ZOLPIDEM  TARTRATE (ZOLPIDEM TARTRATE) (TABLETS) [Concomitant]
  16. REVLIMID (LENALIDOMIDE) (25 MILLIGRAM, CAPSULES) [Suspect]
     Indication: PLASMA CELL MYELOMA
     Route: 048
     Dates: start: 20130319

REACTIONS (1)
  - Pneumonia [None]
